FAERS Safety Report 17839142 (Version 1)
Quarter: 2020Q2

REPORT INFORMATION
  Report Type: Spontaneous
  Country: US (occurrence: US)
  Receive Date: 20200528
  Receipt Date: 20200528
  Transmission Date: 20200714
  Serious: Yes (Life-Threatening, Hospitalization, Disabling, Other)
  Sender: FDA-Public Use
  Company Number: None

PATIENT
  Age: 55 Year
  Sex: Female
  Weight: 56.25 kg

DRUGS (6)
  1. TRAZODONE [Suspect]
     Active Substance: TRAZODONE HYDROCHLORIDE
     Indication: PRODUCT USED FOR UNKNOWN INDICATION
     Dosage: ?          QUANTITY:2 TABLET(S);?
     Route: 048
     Dates: start: 20180106, end: 20200410
  2. KLONAZIPAM 2MG [Concomitant]
  3. SUCROLFATE [Concomitant]
  4. MELOXICAM 7.5MG [Concomitant]
     Active Substance: MELOXICAM
  5. TIZANADINE 4MG [Concomitant]
  6. HYDROXYZINE [Concomitant]
     Active Substance: HYDROXYZINE HYDROCHLORIDE

REACTIONS (75)
  - Wrong product administered [None]
  - Influenza [None]
  - Extrasystoles [None]
  - Urinary tract infection [None]
  - Mental impairment [None]
  - Loss of consciousness [None]
  - Change in sustained attention [None]
  - Depressed level of consciousness [None]
  - Pyrexia [None]
  - Chills [None]
  - Feeling abnormal [None]
  - Hiatus hernia [None]
  - Food craving [None]
  - Aggression [None]
  - Sleep terror [None]
  - Memory impairment [None]
  - Fungal skin infection [None]
  - Dyslipidaemia [None]
  - Renal cyst [None]
  - Transcription medication error [None]
  - Product name confusion [None]
  - Affective disorder [None]
  - Gingival disorder [None]
  - Impaired work ability [None]
  - Fear [None]
  - Dyspnoea [None]
  - Hyperhidrosis [None]
  - Nervousness [None]
  - Hepatic cyst [None]
  - Biliary dilatation [None]
  - Blood cholesterol increased [None]
  - Depression [None]
  - Paraesthesia [None]
  - Weight increased [None]
  - Epistaxis [None]
  - Coordination abnormal [None]
  - Judgement impaired [None]
  - Poor quality sleep [None]
  - Amnesia [None]
  - Dry skin [None]
  - Dysmenorrhoea [None]
  - Gastrointestinal pain [None]
  - Fungal infection [None]
  - Product dispensing error [None]
  - Irritability [None]
  - Parosmia [None]
  - Dissociation [None]
  - Fall [None]
  - Dysarthria [None]
  - Muscular weakness [None]
  - Anxiety [None]
  - Serotonin syndrome [None]
  - Bone disorder [None]
  - Cardiac disorder [None]
  - Nausea [None]
  - Fatigue [None]
  - Impaired driving ability [None]
  - Motor dysfunction [None]
  - Vomiting [None]
  - Opportunistic infection [None]
  - Anger [None]
  - Dissociative disorder [None]
  - Visual impairment [None]
  - Blindness [None]
  - Disorientation [None]
  - Tooth disorder [None]
  - Headache [None]
  - Confusional state [None]
  - Skin haemorrhage [None]
  - Alopecia [None]
  - Uterine prolapse [None]
  - Duodenitis [None]
  - Angina pectoris [None]
  - Post-traumatic stress disorder [None]
  - White matter lesion [None]

NARRATIVE: CASE EVENT DATE: 20180106
